FAERS Safety Report 15908053 (Version 3)
Quarter: 2019Q1

REPORT INFORMATION
  Report Type: Report from Study
  Country: US (occurrence: US)
  Receive Date: 20190204
  Receipt Date: 20190307
  Transmission Date: 20190417
  Serious: No
  Sender: FDA-Public Use
  Company Number: US-AMGEN-USASP2019013150

PATIENT
  Age: 77 Year
  Sex: Male

DRUGS (10)
  1. REPATHA [Suspect]
     Active Substance: EVOLOCUMAB
     Indication: BLOOD CHOLESTEROL DECREASED
     Dosage: 140 MG, Q2WK
     Route: 065
     Dates: start: 2018
  2. QVAR [Concomitant]
     Active Substance: BECLOMETHASONE DIPROPIONATE
     Dosage: 80 MG, Q12H
     Dates: start: 20190123
  3. PANTOPRAZOLE [Concomitant]
     Active Substance: PANTOPRAZOLE
  4. ZETIA [Concomitant]
     Active Substance: EZETIMIBE
     Dosage: UNK
  5. NABUMETONE. [Concomitant]
     Active Substance: NABUMETONE
  6. CIALIS DIARIO [Concomitant]
     Dosage: 5 MG, QD
  7. TESTOSTERONE. [Concomitant]
     Active Substance: TESTOSTERONE
     Dosage: UNK UNK, Q2WK
  8. AZELASTINE. [Concomitant]
     Active Substance: AZELASTINE HYDROCHLORIDE
  9. REPATHA [Suspect]
     Active Substance: EVOLOCUMAB
     Indication: CORONARY ARTERY DISEASE
  10. CLOPIDOGREL [Concomitant]
     Active Substance: CLOPIDOGREL BISULFATE
     Dosage: 25 MG, UNK

REACTIONS (4)
  - Sciatica [Unknown]
  - Arthritis [Unknown]
  - Drug effect incomplete [Unknown]
  - Intervertebral disc protrusion [Unknown]

NARRATIVE: CASE EVENT DATE: 201812
